FAERS Safety Report 4826371-X (Version None)
Quarter: 2005Q4

REPORT INFORMATION
  Report Type: 
  Country: None (occurrence: None)
  Receive Date: 20051111
  Receipt Date: 20051101
  Transmission Date: 20060501
  Serious: Yes (Other)
  Sender: FDA-Public Use
  Company Number: GB-BRISTOL-MYERS SQUIBB COMPANY-13163415

PATIENT
  Age: 14 Year
  Sex: Female
  Weight: 45 kg

DRUGS (12)
  1. AZACTAM [Suspect]
     Indication: LUNG INFECTION
     Route: 042
     Dates: start: 20050406
  2. TEICOPLANIN [Suspect]
     Indication: LUNG INFECTION
     Route: 042
     Dates: start: 20050406
  3. AZITHROMYCIN [Concomitant]
     Indication: CYSTIC FIBROSIS
     Route: 048
  4. COLOMYCIN [Concomitant]
     Indication: CYSTIC FIBROSIS
     Route: 055
  5. CREON [Concomitant]
     Indication: CYSTIC FIBROSIS
     Route: 048
  6. MEDROXYPROGESTERONE [Concomitant]
     Indication: CYSTIC FIBROSIS
     Route: 048
  7. DORNASE ALFA [Concomitant]
     Indication: CYSTIC FIBROSIS
     Route: 055
  8. SALBUTAMOL [Concomitant]
     Indication: CYSTIC FIBROSIS
     Route: 055
  9. VANCOMYCIN [Concomitant]
     Indication: STAPHYLOCOCCAL INFECTION
     Route: 055
  10. POLYMYXIN B SULFATE [Concomitant]
     Indication: STAPHYLOCOCCAL INFECTION
     Route: 045
  11. MULTI-VITAMINS [Concomitant]
     Indication: CYSTIC FIBROSIS
     Route: 048
  12. VITAMIN E [Concomitant]
     Indication: CYSTIC FIBROSIS
     Route: 048

REACTIONS (1)
  - SKIN EXFOLIATION [None]
